FAERS Safety Report 22050316 (Version 10)
Quarter: 2024Q1

REPORT INFORMATION
  Report Type: Report from Study
  Country: US (occurrence: US)
  Receive Date: 20230301
  Receipt Date: 20240101
  Transmission Date: 20240410
  Serious: Yes (Other)
  Sender: FDA-Public Use
  Company Number: US-002147023-NVSC2023US042988

PATIENT
  Age: 63 Year
  Sex: Female

DRUGS (1)
  1. KESIMPTA [Suspect]
     Active Substance: OFATUMUMAB
     Indication: Product used for unknown indication
     Dosage: UNK, QMO
     Route: 065
     Dates: start: 20230112

REACTIONS (9)
  - Myelitis transverse [Unknown]
  - Fall [Recovered/Resolved]
  - Arthralgia [Unknown]
  - Head discomfort [Unknown]
  - Dyskinesia [Unknown]
  - Fine motor skill dysfunction [Unknown]
  - Disturbance in attention [Recovered/Resolved]
  - Product communication issue [Recovered/Resolved]
  - Product dose omission in error [Recovered/Resolved]

NARRATIVE: CASE EVENT DATE: 20230101
